FAERS Safety Report 20128468 (Version 2)
Quarter: 2022Q1

REPORT INFORMATION
  Report Type: Spontaneous
  Country: ES (occurrence: ES)
  Receive Date: 20211130
  Receipt Date: 20220107
  Transmission Date: 20220423
  Serious: Yes (Other)
  Sender: FDA-Public Use
  Company Number: ES-ROCHE-2953876

PATIENT
  Age: 65 Year
  Sex: Male

DRUGS (19)
  1. BEVACIZUMAB [Suspect]
     Active Substance: BEVACIZUMAB
     Indication: Non-small cell lung cancer metastatic
     Dosage: 592 MILLIGRAM
     Route: 065
     Dates: start: 20210803
  2. PACLITAXEL [Suspect]
     Active Substance: PACLITAXEL
     Indication: Non-small cell lung cancer metastatic
     Dosage: 320 UNK
     Route: 042
     Dates: start: 20210803
  3. ATEZOLIZUMAB [Suspect]
     Active Substance: ATEZOLIZUMAB
     Indication: Non-small cell lung cancer metastatic
     Dosage: 1200 MILLIGRAM
     Route: 041
     Dates: start: 20210803
  4. CARBOPLATIN [Suspect]
     Active Substance: CARBOPLATIN
     Indication: Non-small cell lung cancer metastatic
     Dosage: 653 MILLIGRAM
     Route: 065
     Dates: start: 20210803
  5. RANITIDINE [Concomitant]
     Active Substance: RANITIDINE
     Dosage: 5 MILLIGRAM
     Dates: start: 20211103, end: 20211103
  6. RANITIDINE [Concomitant]
     Active Substance: RANITIDINE
     Dosage: 5 MILLIGRAM
     Dates: start: 20210914, end: 20210914
  7. RANITIDINE [Concomitant]
     Active Substance: RANITIDINE
     Dosage: 5 MILLIGRAM
     Dates: start: 20211005, end: 20211005
  8. MORPHINE [Concomitant]
     Active Substance: MORPHINE
     Dosage: UNK
     Dates: start: 20210803, end: 20210910
  9. DEXCHLORPHENIRAMINE [Concomitant]
     Active Substance: DEXCHLORPHENIRAMINE
     Dosage: 5 MILLIGRAM
     Dates: start: 20210914, end: 20210914
  10. DEXCHLORPHENIRAMINE [Concomitant]
     Active Substance: DEXCHLORPHENIRAMINE
     Dosage: 5 MILLIGRAM
     Dates: start: 20211005, end: 20211005
  11. DEXCHLORPHENIRAMINE [Concomitant]
     Active Substance: DEXCHLORPHENIRAMINE
     Dosage: 5 MILLIGRAM
     Dates: start: 20211103, end: 20211103
  12. OMEPRAZOLE [Concomitant]
     Active Substance: OMEPRAZOLE
     Dosage: UNK
     Dates: start: 20210429
  13. METFORMIN [Concomitant]
     Active Substance: METFORMIN HYDROCHLORIDE
     Dosage: UNK
     Dates: start: 20201231
  14. CLOCINIZINE [Concomitant]
     Active Substance: CLOCINIZINE
     Dosage: UNK
     Dates: start: 20210929
  15. LANTUS [Concomitant]
     Active Substance: INSULIN GLARGINE
     Dosage: UNK
     Dates: start: 20210503
  16. EDOXABAN [Concomitant]
     Active Substance: EDOXABAN
     Dosage: UNK
     Dates: start: 20210614
  17. BISOPROLOL [Concomitant]
     Active Substance: BISOPROLOL
     Dosage: UNK
     Dates: start: 20210614
  18. GLICLAZIDE [Concomitant]
     Active Substance: GLICLAZIDE
     Dosage: UNK
     Dates: start: 20210421
  19. PHENYLPROPANOLAMINE [Concomitant]
     Active Substance: PHENYLPROPANOLAMINE
     Dosage: UNK
     Dates: start: 20210929

REACTIONS (5)
  - Neurotoxicity [Recovered/Resolved]
  - Neuropathy peripheral [Recovered/Resolved]
  - Decreased appetite [Recovered/Resolved]
  - Asthenia [Recovered/Resolved]
  - Vomiting [Recovered/Resolved]

NARRATIVE: CASE EVENT DATE: 20210803
